FAERS Safety Report 7562056-7 (Version None)
Quarter: 2011Q2

REPORT INFORMATION
  Report Type: 
  Country: None (occurrence: None)
  Receive Date: 20110622
  Receipt Date: 20090623
  Transmission Date: 20111010
  Serious: Yes (Death)
  Sender: FDA-Public Use
  Company Number: PHHY2009DE68667

PATIENT
  Sex: Male
  Weight: 80 kg

DRUGS (2)
  1. SANDOSTATIN LAR [Suspect]
     Indication: NEUROENDOCRINE TUMOUR
     Dosage: 30 MG, UNK
     Route: 030
     Dates: start: 20090301
  2. LEVOTHYROXINE SODIUM [Concomitant]
     Dosage: 75 MG, UNK

REACTIONS (5)
  - DECREASED APPETITE [None]
  - CONSTIPATION [None]
  - WEIGHT DECREASED [None]
  - DEATH [None]
  - PYREXIA [None]
